FAERS Safety Report 13487451 (Version 1)
Quarter: 2017Q2

REPORT INFORMATION
  Report Type: Report from Study
  Country: IE (occurrence: IE)
  Receive Date: 20170426
  Receipt Date: 20170426
  Transmission Date: 20170830
  Serious: Yes (Hospitalization)
  Sender: FDA-Public Use
  Company Number: IE-JNJFOC-20170421190

PATIENT
  Age: 26 Year
  Sex: Female

DRUGS (8)
  1. STELARA [Suspect]
     Active Substance: USTEKINUMAB
     Indication: CROHN^S DISEASE
     Route: 058
     Dates: start: 20170418
  2. METHOTREXATE. [Concomitant]
     Active Substance: METHOTREXATE
     Route: 065
  3. FOLIC ACID. [Concomitant]
     Active Substance: FOLIC ACID
     Route: 065
  4. ARCOXIA [Concomitant]
     Active Substance: ETORICOXIB
     Route: 065
  5. BECLAZONE [Concomitant]
     Route: 065
  6. YASMIN [Concomitant]
     Active Substance: DROSPIRENONE\ETHINYL ESTRADIOL
     Route: 065
  7. STELARA [Suspect]
     Active Substance: USTEKINUMAB
     Indication: CROHN^S DISEASE
     Route: 058
  8. SALAMOL [Concomitant]
     Active Substance: ALBUTEROL
     Route: 065

REACTIONS (1)
  - Tonsillitis [Recovered/Resolved]

NARRATIVE: CASE EVENT DATE: 20170401
